FAERS Safety Report 20835974 (Version 1)
Quarter: 2022Q2

REPORT INFORMATION
  Report Type: Spontaneous
  Country: US (occurrence: US)
  Receive Date: 20220516
  Receipt Date: 20220516
  Transmission Date: 20220721
  Serious: Yes (Other)
  Sender: FDA-Public Use
  Company Number: US-BRISTOL-MYERS SQUIBB COMPANY-2022-035742

PATIENT
  Age: 63 Year
  Sex: Female
  Weight: 41.05 kg

DRUGS (1)
  1. REVLIMID [Suspect]
     Active Substance: LENALIDOMIDE
     Indication: Plasma cell myeloma
     Dosage: DOSE : 2.5 MG;     FREQ : ^EVERY OTHER DAY, NO BREAKS^
     Route: 065
     Dates: start: 201907

REACTIONS (2)
  - COVID-19 pneumonia [Unknown]
  - Off label use [Unknown]
